FAERS Safety Report 17876939 (Version 1)
Quarter: 2020Q2

REPORT INFORMATION
  Report Type: Spontaneous
  Country: US (occurrence: US)
  Receive Date: 20200609
  Receipt Date: 20200609
  Transmission Date: 20200714
  Serious: No
  Sender: FDA-Public Use
  Company Number: US-VERTEX PHARMACEUTICALS-2020-012329

PATIENT
  Age: 24 Year
  Sex: Female

DRUGS (3)
  1. TRIKAFTA [Suspect]
     Active Substance: ELEXACAFTOR\IVACAFTOR\TEZACAFTOR
     Indication: CYSTIC FIBROSIS
     Dosage: 2 TABS100 MG ELEXACAFTOR/ 50 MG TEZACAFTOR/ 75 MG IVACAFTOR AM; 1 TAB150MG IVACAFTOR PM
     Route: 048
     Dates: start: 20191203
  2. BETHKIS [Concomitant]
     Active Substance: TOBRAMYCIN
  3. CAYSTON [Concomitant]
     Active Substance: AZTREONAM

REACTIONS (1)
  - Rash [Unknown]

NARRATIVE: CASE EVENT DATE: 202005
